FAERS Safety Report 24766800 (Version 1)
Quarter: 2024Q4

REPORT INFORMATION
  Report Type: Spontaneous
  Country: BE (occurrence: BE)
  Receive Date: 20241223
  Receipt Date: 20241223
  Transmission Date: 20250115
  Serious: Yes (Death)
  Sender: BAUSCH AND LOMB
  Company Number: BE-BAUSCH-BL-2024-018509

PATIENT
  Age: 76 Year
  Sex: Female

DRUGS (1)
  1. PLENVU [Suspect]
     Active Substance: ASCORBIC ACID\POLYETHYLENE GLYCOL 3350\POTASSIUM CHLORIDE\SODIUM ASCORBATE\SODIUM CHLORIDE\SODIUM SU
     Indication: Bowel preparation
     Route: 048
     Dates: start: 20241205

REACTIONS (10)
  - Dyspnoea [Fatal]
  - Cyanosis [Fatal]
  - Hepatic failure [Fatal]
  - Vomiting [Fatal]
  - Fatigue [Fatal]
  - Ammonia increased [Fatal]
  - Pyrexia [Fatal]
  - Blood lactic acid increased [Fatal]
  - Diarrhoea [Fatal]
  - Nausea [Recovered/Resolved]

NARRATIVE: CASE EVENT DATE: 20241206
